FAERS Safety Report 8228824-3 (Version None)
Quarter: 2012Q1

REPORT INFORMATION
  Report Type: 
  Country: None (occurrence: None)
  Receive Date: 20120322
  Receipt Date: 20120316
  Transmission Date: 20120608
  Serious: Yes (Other)
  Sender: FDA-Public Use
  Company Number: AU-GLAXOSMITHKLINE-B0781612A

PATIENT
  Sex: Male
  Weight: 85 kg

DRUGS (7)
  1. AVODART [Suspect]
     Indication: PRODUCT USED FOR UNKNOWN INDICATION
     Route: 065
     Dates: start: 20110301, end: 20110801
  2. MOVIPREP [Concomitant]
  3. PANADOL OSTEO [Concomitant]
  4. PANTOPRAZOLE [Concomitant]
     Dosage: 40MG PER DAY
  5. SYMBICORT [Concomitant]
  6. DUTASTERIDE/TAMSULOSIN HYDROCHLORIDE [Suspect]
     Indication: BENIGN PROSTATIC HYPERPLASIA
     Route: 065
     Dates: start: 20110801, end: 20111101
  7. DBL ASPIRIN [Concomitant]

REACTIONS (3)
  - BACK PAIN [None]
  - PROSTATE CANCER [None]
  - METASTASES TO BONE [None]
